FAERS Safety Report 13671206 (Version 1)
Quarter: 2017Q2

REPORT INFORMATION
  Report Type: Spontaneous
  Country: US (occurrence: US)
  Receive Date: 20170620
  Receipt Date: 20170620
  Transmission Date: 20170830
  Serious: No
  Sender: FDA-Public Use
  Company Number: US-ROCHE-1349076

PATIENT
  Sex: Female
  Weight: 54.03 kg

DRUGS (2)
  1. XELODA [Suspect]
     Active Substance: CAPECITABINE
     Indication: BREAST CANCER
     Dosage: BID 7 DAYS ON, 7 DAYS OFF
     Route: 048
     Dates: start: 20131105
  2. XELODA [Suspect]
     Active Substance: CAPECITABINE
     Route: 048
     Dates: start: 20131106

REACTIONS (3)
  - Drug dose omission [Unknown]
  - Nausea [Unknown]
  - Peripheral swelling [Unknown]
